FAERS Safety Report 10242398 (Version 1)
Quarter: 2014Q2

REPORT INFORMATION
  Report Type: Spontaneous
  Country: BR (occurrence: BR)
  Receive Date: 20140617
  Receipt Date: 20140617
  Transmission Date: 20141212
  Serious: Yes (Other)
  Sender: FDA-Public Use
  Company Number: BR-PFIZER INC-2014163636

PATIENT
  Sex: Female

DRUGS (1)
  1. NORDETTE [Suspect]

REACTIONS (1)
  - Cystitis [Unknown]
